FAERS Safety Report 16192828 (Version 1)
Quarter: 2019Q2

REPORT INFORMATION
  Report Type: Spontaneous
  Country: HR (occurrence: HR)
  Receive Date: 20190412
  Receipt Date: 20190412
  Transmission Date: 20190711
  Serious: Yes (Other)
  Sender: FDA-Public Use
  Company Number: PHHY2019HR083687

PATIENT
  Age: 85 Year
  Sex: Male
  Weight: 90 kg

DRUGS (3)
  1. DICLAC DUO [Suspect]
     Active Substance: DICLOFENAC SODIUM
     Indication: RHEUMATIC DISORDER
     Dosage: 150 MG, (75 MG; 2 X 1)
     Route: 048
  2. CO DALNEVA [Concomitant]
     Indication: HYPERTENSION
     Dosage: 1 DF, QD (4/1.25/5; 1 X 1)
     Route: 048
  3. LANZUL [Concomitant]
     Active Substance: LANSOPRAZOLE
     Indication: GASTRITIS
     Dosage: 30 MG, QD
     Route: 048

REACTIONS (1)
  - Urinary retention [Recovered/Resolved]

NARRATIVE: CASE EVENT DATE: 20190201
